FAERS Safety Report 18845217 (Version 1)
Quarter: 2021Q1

REPORT INFORMATION
  Report Type: Spontaneous
  Country: CA (occurrence: CA)
  Receive Date: 20210204
  Receipt Date: 20210204
  Transmission Date: 20210419
  Serious: Yes (Hospitalization)
  Sender: FDA-Public Use
  Company Number: CA-JNJFOC-20210148657

PATIENT
  Age: 90 Year
  Sex: Female

DRUGS (1)
  1. TRAMACET [Suspect]
     Active Substance: ACETAMINOPHEN\TRAMADOL
     Indication: PAIN MANAGEMENT
     Route: 048

REACTIONS (6)
  - Behaviour disorder [Unknown]
  - Confusional state [Unknown]
  - Tearfulness [Unknown]
  - Altered state of consciousness [Unknown]
  - Memory impairment [Unknown]
  - Agitation [Unknown]
